FAERS Safety Report 4548661-0 (Version None)
Quarter: 2005Q1

REPORT INFORMATION
  Report Type: 
  Country: None (occurrence: None)
  Receive Date: 20050107
  Receipt Date: 20050107
  Transmission Date: 20050727
  Serious: Yes (Life-Threatening, Hospitalization)
  Sender: FDA-Public Use
  Company Number: None

PATIENT
  Age: 73 Year
  Sex: Male
  Weight: 83.6 kg

DRUGS (28)
  1. RITUXAN [Suspect]
     Indication: CHRONIC LYMPHOCYTIC LEUKAEMIA
     Dosage: 375 MG /M2 IV Q 21 DAY =731 MG
     Route: 042
     Dates: start: 20040721, end: 20040723
  2. RITUXAN [Suspect]
     Indication: CHRONIC LYMPHOCYTIC LEUKAEMIA
     Dosage: 375 MG /M2 IV Q 21 DAY =731 MG
     Route: 042
     Dates: start: 20040818, end: 20040908
  3. RITUXAN [Suspect]
     Indication: CHRONIC LYMPHOCYTIC LEUKAEMIA
     Dosage: 375 MG /M2 IV Q 21 DAY =731 MG
     Route: 042
     Dates: start: 20041001, end: 20041010
  4. RITUXAN [Suspect]
     Indication: CHRONIC LYMPHOCYTIC LEUKAEMIA
     Dosage: 375 MG /M2 IV Q 21 DAY =731 MG
     Route: 042
     Dates: start: 20041110
  5. RITUXAN [Suspect]
     Indication: CHRONIC LYMPHOCYTIC LEUKAEMIA
     Dosage: 375 MG /M2 IV Q 21 DAY =731 MG
     Route: 042
     Dates: start: 20041208
  6. PENTOSTATION 2 MG/ML [Suspect]
     Indication: CHRONIC LYMPHOCYTIC LEUKAEMIA
     Dosage: 2 MG/M2 IV Q 21 DAYS = 3.9 MG
     Route: 042
     Dates: start: 20040721
  7. PENTOSTATION 2 MG/ML [Suspect]
     Indication: CHRONIC LYMPHOCYTIC LEUKAEMIA
     Dosage: 2 MG/M2 IV Q 21 DAYS = 3.9 MG
     Route: 042
     Dates: start: 20040818
  8. PENTOSTATION 2 MG/ML [Suspect]
     Indication: CHRONIC LYMPHOCYTIC LEUKAEMIA
     Dosage: 2 MG/M2 IV Q 21 DAYS = 3.9 MG
     Route: 042
     Dates: start: 20040908
  9. PENTOSTATION 2 MG/ML [Suspect]
     Indication: CHRONIC LYMPHOCYTIC LEUKAEMIA
     Dosage: 2 MG/M2 IV Q 21 DAYS = 3.9 MG
     Route: 042
     Dates: start: 20041020
  10. PENTOSTATION 2 MG/ML [Suspect]
     Indication: CHRONIC LYMPHOCYTIC LEUKAEMIA
     Dosage: 2 MG/M2 IV Q 21 DAYS = 3.9 MG
     Route: 042
     Dates: start: 20041110
  11. PENTOSTATION 2 MG/ML [Suspect]
     Indication: CHRONIC LYMPHOCYTIC LEUKAEMIA
     Dosage: 2 MG/M2 IV Q 21 DAYS = 3.9 MG
     Route: 042
     Dates: start: 20041208
  12. CYTOXAN 300 MG/M2 [Suspect]
     Dosage: 300 MG /M2 IV Q21 D = 585 MG
     Route: 042
     Dates: start: 20040721
  13. CYTOXAN 300 MG/M2 [Suspect]
     Dosage: 300 MG /M2 IV Q21 D = 585 MG
     Route: 042
     Dates: start: 20040723
  14. CYTOXAN 300 MG/M2 [Suspect]
     Dosage: 300 MG /M2 IV Q21 D = 585 MG
     Route: 042
     Dates: start: 20040818
  15. CYTOXAN 300 MG/M2 [Suspect]
     Dosage: 300 MG /M2 IV Q21 D = 585 MG
     Route: 042
     Dates: start: 20040908
  16. CYTOXAN 300 MG/M2 [Suspect]
     Dosage: 300 MG /M2 IV Q21 D = 585 MG
     Route: 042
     Dates: start: 20041020
  17. CYTOXAN 300 MG/M2 [Suspect]
     Dosage: 300 MG /M2 IV Q21 D = 585 MG
     Route: 042
     Dates: start: 20041110
  18. CYTOXAN 300 MG/M2 [Suspect]
     Dosage: 300 MG /M2 IV Q21 D = 585 MG
     Route: 042
     Dates: start: 20041201
  19. ACETAMINOPHEN [Concomitant]
  20. ACYCLOVIR [Concomitant]
  21. ALBUTEROL/IPRATROPIU [Concomitant]
  22. GUALIFENESIN DM [Concomitant]
  23. HYDROCORTISONE [Concomitant]
  24. LEVALBUTEROL [Concomitant]
  25. LEVOFLOXACIN [Concomitant]
  26. LORAZEPAM [Concomitant]
  27. PANTOPRAZOLE [Concomitant]
  28. SALINE LOCK FLUSH [Concomitant]

REACTIONS (2)
  - FEBRILE NEUTROPENIA [None]
  - PLATELET COUNT DECREASED [None]
